FAERS Safety Report 23990702 (Version 3)
Quarter: 2024Q3

REPORT INFORMATION
  Report Type: Spontaneous
  Country: FR (occurrence: FR)
  Receive Date: 20240619
  Receipt Date: 20240702
  Transmission Date: 20241016
  Serious: Yes (Disabling)
  Sender: IPSEN
  Company Number: FR-IPSEN Group, Research and Development-2024-07410

PATIENT
  Age: 53 Year
  Sex: Female
  Weight: 76 kg

DRUGS (5)
  1. DYSPORT [Suspect]
     Active Substance: ABOBOTULINUMTOXINA
     Indication: Torticollis
     Dosage: EVERY 3 MONTHS SINCE JAN-2023
     Route: 030
     Dates: start: 20230124, end: 20230124
  2. DYSPORT [Suspect]
     Active Substance: ABOBOTULINUMTOXINA
     Dosage: EVERY 3 MONTHS SINCE JAN-2023
     Route: 030
     Dates: start: 20230424, end: 20230424
  3. DYSPORT [Suspect]
     Active Substance: ABOBOTULINUMTOXINA
     Dosage: EVERY 3 MONTHS SINCE JAN-2023
     Route: 030
     Dates: start: 20230918, end: 20230918
  4. DYSPORT [Suspect]
     Active Substance: ABOBOTULINUMTOXINA
     Dosage: EVERY 3 MONTHS SINCE JAN-2023
     Route: 030
     Dates: start: 20240122, end: 20240122
  5. DYSPORT [Suspect]
     Active Substance: ABOBOTULINUMTOXINA
     Dosage: EVERY 3 MONTHS SINCE JAN-2023
     Route: 030
     Dates: start: 20240422, end: 20240422

REACTIONS (2)
  - Dizziness [Recovered/Resolved]
  - Migraine [Recovered/Resolved]

NARRATIVE: CASE EVENT DATE: 20230918
